FAERS Safety Report 21242206 (Version 1)
Quarter: 2022Q3

REPORT INFORMATION
  Report Type: Spontaneous
  Country: US (occurrence: US)
  Receive Date: 20220823
  Receipt Date: 20220823
  Transmission Date: 20221027
  Serious: No
  Sender: FDA-Public Use
  Company Number: ALC2022US001284

PATIENT
  Sex: Male

DRUGS (1)
  1. ZADITOR [Suspect]
     Active Substance: KETOTIFEN FUMARATE
     Indication: Product used for unknown indication
     Dosage: 2-3 DROPS IN EACH EYE BEFORE BED.
     Route: 047
     Dates: start: 20220307

REACTIONS (3)
  - Accidental overdose [Unknown]
  - Ocular hyperaemia [Recovering/Resolving]
  - Vision blurred [Recovered/Resolved]

NARRATIVE: CASE EVENT DATE: 20220307
